FAERS Safety Report 11435440 (Version 2)
Quarter: 2015Q4

REPORT INFORMATION
  Report Type: Other
  Country: US (occurrence: US)
  Receive Date: 20150831
  Receipt Date: 20151008
  Transmission Date: 20160304
  Serious: Yes (Death, Other)
  Sender: FDA-Public Use
  Company Number: US-SHIRE-US201510897

PATIENT
  Sex: Female
  Weight: 104.76 kg

DRUGS (24)
  1. ADDERALL [Concomitant]
     Active Substance: AMPHETAMINE ASPARTATE\AMPHETAMINE SULFATE\DEXTROAMPHETAMINE SACCHARATE\DEXTROAMPHETAMINE SULFATE
     Indication: PRODUCT USED FOR UNKNOWN INDICATION
     Dosage: 20 MG, 1X/DAY:QD
     Route: 048
  2. KALBITOR [Concomitant]
     Active Substance: ECALLANTIDE
     Indication: PRODUCT USED FOR UNKNOWN INDICATION
     Dosage: 1 DF, AS REQ^D
     Route: 065
     Dates: start: 20130415
  3. EPIPEN [Concomitant]
     Active Substance: EPINEPHRINE
     Indication: PRODUCT USED FOR UNKNOWN INDICATION
     Dosage: 1 DF, OTHER (AS DIRECTED)
     Route: 065
     Dates: start: 20120919
  4. AMOXICILLIN. [Concomitant]
     Active Substance: AMOXICILLIN
     Indication: PRODUCT USED FOR UNKNOWN INDICATION
     Dosage: 1 DF, OTHER (AS DIRECTED)
     Route: 048
     Dates: start: 20120919
  5. CINRYZE [Suspect]
     Active Substance: HUMAN C1-ESTERASE INHIBITOR
     Indication: HEREDITARY ANGIOEDEMA
     Dosage: UNK UNK, 1X/2WKS
     Route: 042
  6. XANAX [Concomitant]
     Active Substance: ALPRAZOLAM
     Indication: PRODUCT USED FOR UNKNOWN INDICATION
     Dosage: 1 DF, AS REQ^D
     Route: 048
     Dates: start: 20130415
  7. CINRYZE [Suspect]
     Active Substance: HUMAN C1-ESTERASE INHIBITOR
     Indication: PROPHYLAXIS
  8. TYLENOL [Concomitant]
     Active Substance: ACETAMINOPHEN
     Indication: PRODUCT USED FOR UNKNOWN INDICATION
     Dosage: 1 DF, OTHER (AS DIRECTED)
     Route: 048
     Dates: start: 20120919
  9. DIFLUCAN [Concomitant]
     Active Substance: FLUCONAZOLE
     Indication: PRODUCT USED FOR UNKNOWN INDICATION
     Dosage: 1 DF, OTHER (AS DIRECTED)
     Route: 048
     Dates: start: 20120919
  10. SONATA                             /00061001/ [Concomitant]
     Indication: PRODUCT USED FOR UNKNOWN INDICATION
     Dosage: 1 DF, OTHER (AS DIRECTED)
     Route: 048
     Dates: start: 20120919
  11. PROGESTERONE. [Concomitant]
     Active Substance: PROGESTERONE
     Indication: PRODUCT USED FOR UNKNOWN INDICATION
     Dosage: 1 DF, OTHER (AS DIRECTED)
     Route: 048
     Dates: start: 20120919
  12. MEDROXYPROGESTERONE [Concomitant]
     Active Substance: MEDROXYPROGESTERONE
     Indication: PRODUCT USED FOR UNKNOWN INDICATION
     Dosage: 1 DF, 1X/DAY:QD
     Route: 048
     Dates: start: 20130415
  13. TOPAMAX [Concomitant]
     Active Substance: TOPIRAMATE
     Indication: PRODUCT USED FOR UNKNOWN INDICATION
     Dosage: 100 MG, 1X/DAY:QD
     Route: 048
     Dates: start: 20130415
  14. ZOFRAN [Concomitant]
     Active Substance: ONDANSETRON HYDROCHLORIDE
     Indication: PRODUCT USED FOR UNKNOWN INDICATION
     Dosage: 1 DF, OTHER (AS DIRECTED)
     Route: 048
     Dates: start: 20120919
  15. FIRAZYR [Suspect]
     Active Substance: ICATIBANT ACETATE
     Indication: PRODUCT USED FOR UNKNOWN INDICATION
     Dosage: 30 MG, AS REQ^D
     Route: 058
     Dates: start: 20130110
  16. SODIUM CHLORIDE. [Concomitant]
     Active Substance: SODIUM CHLORIDE
     Indication: CATHETER MANAGEMENT
     Dosage: (0.9%) UNK, OTHER (AS DIRECTED)
     Route: 042
     Dates: start: 20150730
  17. STERILE WATER [Concomitant]
     Active Substance: WATER
     Indication: MEDICATION DILUTION
     Dosage: 5 ML, OTHER (AS DIRECTED)
     Route: 042
     Dates: start: 20150730
  18. AMBIEN [Concomitant]
     Active Substance: ZOLPIDEM TARTRATE
     Indication: PRODUCT USED FOR UNKNOWN INDICATION
     Dosage: 20 MG, AS REQ^D
     Route: 048
     Dates: start: 20130415
  19. REMERON [Concomitant]
     Active Substance: MIRTAZAPINE
     Indication: PRODUCT USED FOR UNKNOWN INDICATION
     Dosage: 30 MG, 1X/DAY:QD
     Route: 048
     Dates: start: 20130415
  20. CYMBALTA [Concomitant]
     Active Substance: DULOXETINE HYDROCHLORIDE
     Indication: PRODUCT USED FOR UNKNOWN INDICATION
     Dosage: 60 MG, 1X/DAY:QD
     Route: 048
     Dates: start: 20130415
  21. HEPARIN [Concomitant]
     Active Substance: HEPARIN SODIUM
     Indication: PRODUCT USED FOR UNKNOWN INDICATION
     Dosage: 100 IU, OTHER (AS DIRECTED)
     Route: 042
     Dates: start: 20150730
  22. MULTIVIT                           /07504101/ [Concomitant]
     Indication: PRODUCT USED FOR UNKNOWN INDICATION
     Dosage: 1 DF, 1X/DAY:QD
     Route: 048
     Dates: start: 20130415
  23. LORTAB [Concomitant]
     Active Substance: ACETAMINOPHEN\HYDROCODONE BITARTRATE
     Indication: PRODUCT USED FOR UNKNOWN INDICATION
     Dosage: 1 DF, OTHER (AS DIRECTED)
     Route: 048
     Dates: start: 20120919
  24. MELATONIN [Concomitant]
     Active Substance: MELATONIN
     Indication: PRODUCT USED FOR UNKNOWN INDICATION
     Dosage: 1 DF, 1X/DAY:QD (AT BEDTIME)
     Route: 048
     Dates: start: 20120919

REACTIONS (2)
  - Inappropriate schedule of drug administration [Not Recovered/Not Resolved]
  - Death [Fatal]
